FAERS Safety Report 6729557-2 (Version None)
Quarter: 2010Q2

REPORT INFORMATION
  Report Type: 
  Country: None (occurrence: None)
  Receive Date: 20100518
  Receipt Date: 20100511
  Transmission Date: 20101027
  Serious: No
  Sender: FDA-Public Use
  Company Number: US-BIOGENIDEC-2010BI016012

PATIENT
  Age: 54 Year
  Sex: Female

DRUGS (1)
  1. TYSABRI [Suspect]
     Indication: MULTIPLE SCLEROSIS
     Route: 042
     Dates: start: 20090326

REACTIONS (8)
  - BALANCE DISORDER [None]
  - BLINDNESS UNILATERAL [None]
  - CYSTITIS [None]
  - DISTURBANCE IN ATTENTION [None]
  - GAIT DISTURBANCE [None]
  - KIDNEY INFECTION [None]
  - VISION BLURRED [None]
  - VISUAL ACUITY REDUCED [None]
